FAERS Safety Report 4477827-3 (Version None)
Quarter: 2004Q3

REPORT INFORMATION
  Report Type: 
  Country: None (occurrence: None)
  Receive Date: 20040923
  Receipt Date: 20040824
  Transmission Date: 20050211
  Serious: No
  Sender: FDA-Public Use
  Company Number: USA040874590

PATIENT
  Age: 86 Year
  Sex: Female
  Weight: 42 kg

DRUGS (2)
  1. FORTEO [Suspect]
     Indication: OSTEOPOROSIS
     Dosage: 20 UG/1 DAY
     Dates: start: 20040729
  2. VITAMIN D [Concomitant]

REACTIONS (7)
  - ASTHENIA [None]
  - DIZZINESS [None]
  - FEELING ABNORMAL [None]
  - INJECTION SITE ERYTHEMA [None]
  - INJECTION SITE HAEMORRHAGE [None]
  - PAIN [None]
  - PAIN IN EXTREMITY [None]
